FAERS Safety Report 5087274-1 (Version None)
Quarter: 2006Q3

REPORT INFORMATION
  Report Type: 
  Country: None (occurrence: None)
  Receive Date: 20060801
  Receipt Date: 20050921
  Transmission Date: 20061208
  Serious: Yes (Other)
  Sender: FDA-Public Use
  Company Number: OMPQ-PR-0509S-1304

PATIENT
  Age: 32 Year
  Sex: Male
  Weight: 63.5036 kg

DRUGS (3)
  1. OMNIPAQUE 140 [Suspect]
     Indication: BACK PAIN
     Dosage: 20 ML, SINGLE DOSE, I.T.
     Dates: start: 20050916, end: 20050916
  2. OMNIPAQUE 140 [Suspect]
     Indication: RADICULOPATHY
     Dosage: 20 ML, SINGLE DOSE, I.T.
     Dates: start: 20050916, end: 20050916
  3. VICODIN [Concomitant]

REACTIONS (2)
  - CONVULSION [None]
  - SYNCOPE VASOVAGAL [None]
